FAERS Safety Report 4836985-9 (Version None)
Quarter: 2005Q4

REPORT INFORMATION
  Report Type: 
  Country: None (occurrence: None)
  Receive Date: 20051121
  Receipt Date: 20051116
  Transmission Date: 20060501
  Serious: Yes (Hospitalization)
  Sender: FDA-Public Use
  Company Number: FRWYE145916NOV05

PATIENT
  Age: 47 Year
  Sex: Male

DRUGS (6)
  1. EFFEXOR XR [Suspect]
     Indication: DEPRESSION
     Dosage: 225 MG DAILY
     Route: 048
     Dates: start: 20040901, end: 20050810
  2. ATACAND [Suspect]
     Indication: HYPERTENSION
     Dosage: 16 MG 1X PER 1 DAY ORAL
     Route: 048
     Dates: end: 20050806
  3. TEGRETOL-XR [Suspect]
     Indication: DEPRESSION
     Dosage: 800 MG DAILY ORAL
     Route: 048
     Dates: start: 20050615, end: 20050810
  4. TRILEPTAL [Suspect]
     Indication: TREMOR
     Dosage: 120 MG/ML DAILY ORAL
     Route: 048
     Dates: start: 20040901, end: 20050810
  5. ZYPREXA [Suspect]
     Indication: DEPRESSION
     Dosage: 5 MG 1X PER 1 DAY ORAL
     Route: 048
     Dates: start: 20050515, end: 20050806
  6. XANAX [Concomitant]

REACTIONS (9)
  - ALANINE AMINOTRANSFERASE INCREASED [None]
  - ANAEMIA [None]
  - ASPARTATE AMINOTRANSFERASE INCREASED [None]
  - BLOOD ALKALINE PHOSPHATASE INCREASED [None]
  - DRUG RASH WITH EOSINOPHILIA AND SYSTEMIC SYMPTOMS [None]
  - GAMMA-GLUTAMYLTRANSFERASE INCREASED [None]
  - LIVER DISORDER [None]
  - LYMPHOPENIA [None]
  - PROTEIN URINE PRESENT [None]
